FAERS Safety Report 9713022 (Version 1)
Quarter: 2013Q4

REPORT INFORMATION
  Report Type: Spontaneous
  Country: US (occurrence: US)
  Receive Date: 20131126
  Receipt Date: 20131126
  Transmission Date: 20140711
  Serious: Yes (Hospitalization)
  Sender: FDA-Public Use
  Company Number: US-SA-2013SA122051

PATIENT
  Sex: Male

DRUGS (2)
  1. LANTUS [Suspect]
     Route: 065
  2. GLIPIZIDE [Suspect]
     Route: 065

REACTIONS (4)
  - Adverse event [Unknown]
  - Visual impairment [Unknown]
  - Injection site pain [Unknown]
  - Blood glucose increased [Unknown]
